FAERS Safety Report 16695819 (Version 1)
Quarter: 2019Q3

REPORT INFORMATION
  Report Type: Spontaneous
  Country: US (occurrence: US)
  Receive Date: 20190813
  Receipt Date: 20190813
  Transmission Date: 20191004
  Serious: Yes (Hospitalization)
  Sender: FDA-Public Use
  Company Number: US-SA-2019SA221520

PATIENT
  Age: 47 Year
  Sex: Female

DRUGS (13)
  1. ESTRADIOL. [Concomitant]
     Active Substance: ESTRADIOL
  2. OFLOXACIN. [Concomitant]
     Active Substance: OFLOXACIN
  3. PROGESTERONE. [Concomitant]
     Active Substance: PROGESTERONE
  4. LABETALOL [Concomitant]
     Active Substance: LABETALOL\LABETALOL HYDROCHLORIDE
  5. LITHIUM. [Suspect]
     Active Substance: LITHIUM
  6. DUPIXENT [Suspect]
     Active Substance: DUPILUMAB
     Indication: DERMATITIS ATOPIC
     Dosage: 300 MG, QOW
     Route: 058
     Dates: start: 20181019
  7. ALBUTEROL [SALBUTAMOL] [Concomitant]
     Active Substance: ALBUTEROL
  8. ATIVAN [Concomitant]
     Active Substance: LORAZEPAM
  9. VITAMINS NOS [Concomitant]
     Active Substance: VITAMINS
  10. FLOVENT [Concomitant]
     Active Substance: FLUTICASONE PROPIONATE
  11. FOLIC ACID. [Concomitant]
     Active Substance: FOLIC ACID
  12. PRISTIQ EXTENDED-RELEASE [Concomitant]
     Active Substance: DESVENLAFAXINE SUCCINATE
  13. LISINOPRIL. [Concomitant]
     Active Substance: LISINOPRIL

REACTIONS (2)
  - Accidental exposure to product [Not Recovered/Not Resolved]
  - Borderline personality disorder [Not Recovered/Not Resolved]
